FAERS Safety Report 14781941 (Version 1)
Quarter: 2018Q2

REPORT INFORMATION
  Report Type: Spontaneous
  Country: US (occurrence: US)
  Receive Date: 20180420
  Receipt Date: 20180420
  Transmission Date: 20180711
  Serious: No
  Sender: FDA-Public Use
  Company Number: US-JNJFOC-20180337695

PATIENT
  Age: 29 Year
  Sex: Male
  Weight: 68.04 kg

DRUGS (2)
  1. AIRBORNE [Concomitant]
     Active Substance: HERBALS\MINERALS\VITAMINS
     Indication: NUTRITIONAL SUPPLEMENTATION
     Route: 065
  2. SUDAFED NASAL DECONGESTANT MAXIMUM STRENGTH [Suspect]
     Active Substance: PSEUDOEPHEDRINE HYDROCHLORIDE
     Indication: PRODUCT USED FOR UNKNOWN INDICATION
     Route: 065

REACTIONS (1)
  - Drug ineffective [Unknown]
